FAERS Safety Report 11276101 (Version 1)
Quarter: 2015Q3

REPORT INFORMATION
  Report Type: Report from Study
  Country: ES (occurrence: ES)
  Receive Date: 20150716
  Receipt Date: 20150716
  Transmission Date: 20151125
  Serious: Yes (Other)
  Sender: FDA-Public Use
  Company Number: PHHY2015ES056869

PATIENT
  Age: 39 Year
  Sex: Female

DRUGS (1)
  1. SANDOSTATIN LAR DEPOT [Suspect]
     Active Substance: OCTREOTIDE ACETATE
     Indication: ACROMEGALY
     Dosage: 30 MG, UNK
     Route: 030
     Dates: start: 20131031

REACTIONS (2)
  - Cholelithiasis [Recovered/Resolved]
  - Haemangioma of liver [Recovered/Resolved]

NARRATIVE: CASE EVENT DATE: 20150506
